FAERS Safety Report 8846886 (Version 1)
Quarter: 2012Q4

REPORT INFORMATION
  Report Type: Spontaneous
  Country: US (occurrence: None)
  Receive Date: 20121016
  Receipt Date: 20121016
  Transmission Date: 20130627
  Serious: Yes (Death)
  Sender: FDA-Public Use
  Company Number: FK201202981

PATIENT
  Age: 76 Year
  Sex: Female

DRUGS (1)
  1. HEPARIN SODIUM [Suspect]
     Indication: ANTICOAGULANT THERAPY
     Route: 042

REACTIONS (5)
  - Heparin-induced thrombocytopenia [None]
  - Sepsis [None]
  - Renal failure [None]
  - Hepatic failure [None]
  - Post procedural complication [None]
